FAERS Safety Report 9091553 (Version 1)
Quarter: 2013Q1

REPORT INFORMATION
  Report Type: Spontaneous
  Country: PR (occurrence: PR)
  Receive Date: 20130201
  Receipt Date: 20130201
  Transmission Date: 20140127
  Serious: No
  Sender: FDA-Public Use
  Company Number: PR-ABBOTT-12P-131-1011622-00

PATIENT
  Age: 40 Year
  Sex: Female
  Weight: 106.69 kg

DRUGS (5)
  1. HUMIRA [Suspect]
     Indication: CROHN^S DISEASE
     Route: 058
     Dates: start: 201205
  2. HUMIRA [Suspect]
     Indication: COLITIS ULCERATIVE
  3. IMURAN [Concomitant]
     Indication: CROHN^S DISEASE
     Dosage: 1 TABLET TID
     Route: 048
  4. ASACOL [Concomitant]
     Indication: COLITIS ULCERATIVE
     Dosage: 3 TABLETS DAILY
     Route: 048
  5. WELLBUTRIN [Concomitant]
     Indication: DEPRESSION
     Dosage: 1 TABLET DAILY
     Route: 048

REACTIONS (4)
  - Accident [Recovering/Resolving]
  - Back injury [Recovering/Resolving]
  - Injection site bruising [Not Recovered/Not Resolved]
  - Injection site haemorrhage [Recovered/Resolved]
